FAERS Safety Report 22318470 (Version 1)
Quarter: 2023Q2

REPORT INFORMATION
  Report Type: Spontaneous
  Country: US (occurrence: US)
  Receive Date: 20230515
  Receipt Date: 20230515
  Transmission Date: 20230721
  Serious: No
  Sender: FDA-Public Use
  Company Number: US-MYLANLABS-2023M1047513

PATIENT
  Sex: Female

DRUGS (1)
  1. SEMGLEE (INSULIN GLARGINE-YFGN) [Suspect]
     Active Substance: INSULIN GLARGINE-YFGN
     Indication: Diabetes mellitus
     Dosage: 44 INTERNATIONAL UNIT, QD (AT NIGHT)
     Route: 058

REACTIONS (6)
  - Device breakage [Unknown]
  - Device mechanical issue [Unknown]
  - Device physical property issue [Unknown]
  - Device delivery system issue [Unknown]
  - Needle issue [Unknown]
  - Wrong technique in device usage process [Unknown]
